FAERS Safety Report 25926296 (Version 1)
Quarter: 2025Q4

REPORT INFORMATION
  Report Type: Spontaneous
  Country: US (occurrence: US)
  Receive Date: 20251015
  Receipt Date: 20251015
  Transmission Date: 20260118
  Serious: Yes (Death, Life-Threatening, Hospitalization)
  Sender: AMGEN
  Company Number: US-AMGEN-USASP2025201570

PATIENT
  Age: 43 Year
  Sex: Male

DRUGS (1)
  1. PREDNISONE [Suspect]
     Active Substance: PREDNISONE
     Indication: Tolosa-Hunt syndrome
     Dosage: 60 MILLIGRAM, EIGHT-WEEK TAPER
     Route: 065

REACTIONS (5)
  - Actinomycosis [Fatal]
  - Coma [Unknown]
  - Cerebral infarction [Unknown]
  - Drug effective for unapproved indication [Unknown]
  - Off label use [Unknown]
